FAERS Safety Report 9198309 (Version 1)
Quarter: 2013Q1

REPORT INFORMATION
  Report Type: Spontaneous
  Country: US (occurrence: US)
  Receive Date: 20130329
  Receipt Date: 20130329
  Transmission Date: 20140127
  Serious: No
  Sender: FDA-Public Use
  Company Number: US-BIOGENIDEC-2013BI028350

PATIENT
  Sex: Female

DRUGS (3)
  1. TYSABRI [Suspect]
     Indication: MULTIPLE SCLEROSIS
     Route: 042
     Dates: start: 20130305
  2. IV STEROIDS [Concomitant]
     Indication: MULTIPLE SCLEROSIS RELAPSE
  3. IV STEROIDS [Concomitant]
     Indication: OPTIC NEURITIS

REACTIONS (3)
  - Drug eruption [Unknown]
  - Memory impairment [Not Recovered/Not Resolved]
  - Adverse drug reaction [Unknown]
